FAERS Safety Report 6419206-5 (Version None)
Quarter: 2009Q4

REPORT INFORMATION
  Report Type: 
  Country: None (occurrence: None)
  Receive Date: 20091028
  Receipt Date: 20091028
  Transmission Date: 20100525
  Serious: Yes (Life-Threatening)
  Sender: FDA-Public Use
  Company Number: None

PATIENT
  Sex: Female
  Weight: 77.1115 kg

DRUGS (1)
  1. AMBIEN CR [Suspect]
     Indication: INSOMNIA
     Dosage: 1 PILL 1 PO
     Route: 048
     Dates: start: 20091018, end: 20091018

REACTIONS (10)
  - DIZZINESS [None]
  - DRY MOUTH [None]
  - DYSSTASIA [None]
  - EYE ROLLING [None]
  - GAIT DISTURBANCE [None]
  - HYPERTENSION [None]
  - INSOMNIA [None]
  - NAUSEA [None]
  - VERTIGO [None]
  - VOMITING [None]
